FAERS Safety Report 6744897-9 (Version None)
Quarter: 2010Q2

REPORT INFORMATION
  Report Type: 
  Country: None (occurrence: None)
  Receive Date: 20100527
  Receipt Date: 20100518
  Transmission Date: 20101027
  Serious: Yes (Hospitalization)
  Sender: FDA-Public Use
  Company Number: US-WYE-H15197210

PATIENT
  Sex: Female
  Weight: 54.48 kg

DRUGS (4)
  1. PRISTIQ [Suspect]
     Indication: DEPRESSION
     Route: 048
     Dates: start: 20100201, end: 20100101
  2. LITHIUM [Suspect]
     Dosage: UNKNOWN
  3. SEROQUEL [Suspect]
     Dosage: UNKNOWN
     Dates: start: 20100301, end: 20100101
  4. RITALIN [Suspect]
     Dosage: UNKNOWN

REACTIONS (6)
  - AGGRESSION [None]
  - ANXIETY [None]
  - DEPRESSED MOOD [None]
  - FEELING ABNORMAL [None]
  - SUICIDAL IDEATION [None]
  - WEIGHT INCREASED [None]
